FAERS Safety Report 13703052 (Version 1)
Quarter: 2017Q2

REPORT INFORMATION
  Report Type: Spontaneous
  Country: FR (occurrence: FR)
  Receive Date: 20170629
  Receipt Date: 20170629
  Transmission Date: 20170830
  Serious: Yes (Hospitalization)
  Sender: FDA-Public Use
  Company Number: FR-BAYER-2017-122957

PATIENT
  Age: 29 Year
  Sex: Female

DRUGS (1)
  1. MIRENA [Suspect]
     Active Substance: LEVONORGESTREL
     Indication: CONTRACEPTION
     Dosage: 20 MCG/24HR, CONT
     Route: 015
     Dates: start: 20080601, end: 20120401

REACTIONS (14)
  - Ovarian cyst [Unknown]
  - Anxiety [Unknown]
  - Depression [Unknown]
  - Alopecia [Unknown]
  - Abdominal distension [Unknown]
  - Cholelithiasis [Unknown]
  - Breast pain [Unknown]
  - Asthenia [Unknown]
  - Vaginal discharge [Unknown]
  - Acne [Unknown]
  - Hyperhidrosis [Unknown]
  - Back pain [Unknown]
  - Weight increased [Unknown]
  - Vomiting [Unknown]

NARRATIVE: CASE EVENT DATE: 2012
